FAERS Safety Report 14741763 (Version 1)
Quarter: 2018Q2

REPORT INFORMATION
  Report Type: Spontaneous
  Country: IT (occurrence: IT)
  Receive Date: 20180410
  Receipt Date: 20180410
  Transmission Date: 20180711
  Serious: Yes (Other)
  Sender: FDA-Public Use
  Company Number: IT-TEVA-2018-IT-879548

PATIENT
  Age: 34 Year
  Sex: Male

DRUGS (1)
  1. COPAXONE [Suspect]
     Active Substance: GLATIRAMER ACETATE
     Indication: RELAPSING-REMITTING MULTIPLE SCLEROSIS
     Dosage: UNKNOWN FORM OF STRENGHT
     Route: 065

REACTIONS (8)
  - Hepatomegaly [Unknown]
  - Depression [Recovered/Resolved]
  - Thrombocytopenia [Unknown]
  - Central nervous system lesion [Recovered/Resolved]
  - Herpes simplex [Unknown]
  - Colon cancer [Unknown]
  - Pertussis [Unknown]
  - Muscle spasms [Recovered/Resolved]
